FAERS Safety Report 4666713-1 (Version None)
Quarter: 2005Q2

REPORT INFORMATION
  Report Type: 
  Country: None (occurrence: None)
  Receive Date: 20050518
  Receipt Date: 20041013
  Transmission Date: 20051028
  Serious: Yes (Hospitalization, Other)
  Sender: FDA-Public Use
  Company Number: 2004238988US

PATIENT
  Age: 63 Year
  Sex: Female

DRUGS (2)
  1. PROVERA [Suspect]
     Indication: MENOPAUSAL SYMPTOMS
     Route: 065
     Dates: start: 19930101, end: 19940101
  2. PREMARIN [Suspect]
     Indication: MENOPAUSAL SYMPTOMS
     Route: 065
     Dates: start: 19930101, end: 19940101

REACTIONS (1)
  - DEEP VEIN THROMBOSIS [None]
